FAERS Safety Report 9931831 (Version 1)
Quarter: 2014Q1

REPORT INFORMATION
  Report Type: Spontaneous
  Country: US (occurrence: None)
  Receive Date: 20140227
  Receipt Date: 20140227
  Transmission Date: 20141002
  Serious: Yes (Other)
  Sender: FDA-Public Use
  Company Number: None

PATIENT
  Age: 65 Year
  Sex: Female
  Weight: 61.24 kg

DRUGS (1)
  1. ATORVASTATIN [Suspect]
     Indication: UNEVALUABLE EVENT
     Route: 048
     Dates: start: 20130227, end: 20131204

REACTIONS (1)
  - Ocular hyperaemia [None]
